FAERS Safety Report 19595675 (Version 1)
Quarter: 2021Q3

REPORT INFORMATION
  Report Type: Spontaneous
  Country: CA (occurrence: CA)
  Receive Date: 20210722
  Receipt Date: 20210722
  Transmission Date: 20211014
  Serious: Yes (Death)
  Sender: FDA-Public Use
  Company Number: CA-ACCORD-232426

PATIENT
  Age: 75 Year
  Sex: Female

DRUGS (3)
  1. NON?STEROIDAL ANTI?INFLAMMATORY DRUG [Concomitant]
     Active Substance: UNSPECIFIED INGREDIENT
  2. HYDROXYCHLOROQUINE [Concomitant]
     Active Substance: HYDROXYCHLOROQUINE
  3. METHOTREXATE. [Suspect]
     Active Substance: METHOTREXATE
     Indication: PRODUCT USED FOR UNKNOWN INDICATION

REACTIONS (5)
  - Asthenia [Fatal]
  - Staphylococcal sepsis [Fatal]
  - Septic shock [Fatal]
  - Bacteraemia [Fatal]
  - Syncope [Fatal]
